FAERS Safety Report 24647503 (Version 1)
Quarter: 2024Q4

REPORT INFORMATION
  Report Type: Spontaneous
  Country: US (occurrence: US)
  Receive Date: 20241121
  Receipt Date: 20241121
  Transmission Date: 20250114
  Serious: No
  Sender: CHATTEM
  Company Number: US-OPELLA-2024OHG038366

PATIENT

DRUGS (1)
  1. SELSUN BLUE MEDICATED [Suspect]
     Active Substance: SELENIUM SULFIDE
     Indication: Pruritus

REACTIONS (5)
  - Hair texture abnormal [Unknown]
  - Feeling abnormal [Unknown]
  - Pruritus [Unknown]
  - Product physical issue [Unknown]
  - Product odour abnormal [Unknown]
